FAERS Safety Report 7113320-7 (Version None)
Quarter: 2010Q4

REPORT INFORMATION
  Report Type: 
  Country: None (occurrence: None)
  Receive Date: 20101119
  Receipt Date: 20100827
  Transmission Date: 20110411
  Serious: No
  Sender: FDA-Public Use
  Company Number: A0879073A

PATIENT
  Age: 54 Year
  Sex: Female

DRUGS (4)
  1. WELLBUTRIN SR [Suspect]
     Indication: DEPRESSION
     Dosage: 100MG PER DAY
     Route: 048
     Dates: start: 20100701, end: 20100801
  2. LEXAPRO [Suspect]
     Indication: DEPRESSION
     Dosage: 20MG PER DAY
     Route: 048
     Dates: start: 20030101, end: 20100501
  3. ELAVIL [Concomitant]
     Indication: INSOMNIA
     Dosage: 5MG AS REQUIRED
     Route: 048
  4. VALIUM [Concomitant]
     Indication: NECK PAIN
     Dosage: 2.6MG AS REQUIRED
     Route: 048

REACTIONS (1)
  - DRY MOUTH [None]
